FAERS Safety Report 18102343 (Version 2)
Quarter: 2020Q3

REPORT INFORMATION
  Report Type: Spontaneous
  Country: FI (occurrence: FI)
  Receive Date: 20200803
  Receipt Date: 20200808
  Transmission Date: 20201103
  Serious: Yes (Other)
  Sender: FDA-Public Use
  Company Number: FI-AMGEN-FINSP2020123793

PATIENT
  Sex: Female

DRUGS (1)
  1. AIMOVIG [Suspect]
     Active Substance: ERENUMAB-AOOE
     Indication: PRODUCT USED FOR UNKNOWN INDICATION
     Dosage: UNK
     Route: 065
     Dates: start: 201905

REACTIONS (9)
  - Injection site pain [Unknown]
  - Sleep disorder [Unknown]
  - Vision blurred [Unknown]
  - Dyspnoea [Unknown]
  - Palpitations [Unknown]
  - Arrhythmia [Unknown]
  - Initial insomnia [Unknown]
  - Dry eye [Unknown]
  - Constipation [Unknown]

NARRATIVE: CASE EVENT DATE: 201905
